FAERS Safety Report 10619471 (Version 2)
Quarter: 2015Q2

REPORT INFORMATION
  Report Type: Spontaneous
  Country: CA (occurrence: CA)
  Receive Date: 20141202
  Receipt Date: 20150410
  Transmission Date: 20150821
  Serious: Yes (Disabling, Other)
  Sender: FDA-Public Use
  Company Number: CA-BAYER-2014-176055

PATIENT
  Age: 30 Year
  Sex: Female

DRUGS (1)
  1. MIRENA [Suspect]
     Active Substance: LEVONORGESTREL
     Dosage: 20 MCG/24HR, UNK
     Route: 015
     Dates: start: 20131027, end: 20140811

REACTIONS (16)
  - Diplopia [None]
  - Tinnitus [None]
  - Nausea [Recovered/Resolved]
  - Visual acuity reduced [Recovered/Resolved]
  - Headache [None]
  - Musculoskeletal pain [None]
  - Hypothermia [None]
  - Blindness [None]
  - Vertigo [Recovered/Resolved]
  - Alopecia [None]
  - Fungal infection [Recovered/Resolved]
  - Dizziness [Recovered/Resolved]
  - Urticaria [Recovered/Resolved]
  - Intracranial pressure increased [Recovered/Resolved]
  - Tinnitus [Recovered/Resolved]
  - Head discomfort [Recovered/Resolved]

NARRATIVE: CASE EVENT DATE: 20131027
